FAERS Safety Report 14720757 (Version 1)
Quarter: 2018Q2

REPORT INFORMATION
  Report Type: Report from Study
  Country: US (occurrence: US)
  Receive Date: 20180405
  Receipt Date: 20180405
  Transmission Date: 20180711
  Serious: Yes (Hospitalization)
  Sender: FDA-Public Use
  Company Number: US-JNJFOC-20180400380

PATIENT
  Sex: Male

DRUGS (1)
  1. REMICADE [Suspect]
     Active Substance: INFLIXIMAB
     Indication: CROHN^S DISEASE
     Route: 042

REACTIONS (10)
  - Short-bowel syndrome [Unknown]
  - Restless legs syndrome [Unknown]
  - Pulmonary mass [Unknown]
  - Sinus disorder [Unknown]
  - Crohn^s disease [Unknown]
  - Nephrolithiasis [Unknown]
  - Anal fistula [Unknown]
  - Haemorrhoids [Unknown]
  - Intestinal resection [Unknown]
  - Respiratory disorder [Unknown]

NARRATIVE: CASE EVENT DATE: 201803
